FAERS Safety Report 5964211-6 (Version None)
Quarter: 2008Q4

REPORT INFORMATION
  Report Type: 
  Country: None (occurrence: None)
  Receive Date: 20081124
  Receipt Date: 20081119
  Transmission Date: 20090506
  Serious: Yes (Other)
  Sender: FDA-Public Use
  Company Number: JP-PFIZER INC-2008091047

PATIENT
  Sex: Female
  Weight: 39 kg

DRUGS (9)
  1. SOLANAX [Suspect]
     Indication: DEPRESSION
     Route: 048
     Dates: start: 20070710, end: 20070717
  2. SOLANAX [Suspect]
     Dates: start: 20070710, end: 20070717
  3. AMOXAPINE [Suspect]
     Indication: DEPRESSION
     Dates: start: 20070626, end: 20070717
  4. IRSOGLADINE MALEATE [Suspect]
     Indication: GASTRIC ULCER
     Dates: start: 20070626, end: 20070717
  5. ERISPAN [Suspect]
     Indication: DEPRESSION
     Dates: start: 20070626, end: 20070717
  6. LUVOX [Suspect]
     Indication: DEPRESSION
     Dates: start: 20070626, end: 20070717
  7. ROHYPNOL [Suspect]
     Indication: DEPRESSION
     Route: 048
     Dates: start: 20070709, end: 20070717
  8. SEROQUEL [Concomitant]
     Dates: start: 20070709, end: 20070717
  9. DORAL [Concomitant]
     Dates: start: 20070626, end: 20070709

REACTIONS (1)
  - DRUG ERUPTION [None]
